FAERS Safety Report 21646859 (Version 1)
Quarter: 2022Q4

REPORT INFORMATION
  Report Type: Spontaneous
  Country: ES (occurrence: ES)
  Receive Date: 20221127
  Receipt Date: 20221127
  Transmission Date: 20230113
  Serious: Yes (Hospitalization)
  Sender: FDA-Public Use
  Company Number: None

PATIENT
  Age: 47 Year
  Sex: Male

DRUGS (3)
  1. ETOPOSIDE [Interacting]
     Active Substance: ETOPOSIDE
     Indication: Testicular neoplasm
     Dosage: ETOPOSIDO (518A), DURATION : 67 DAYS
     Dates: start: 20220801, end: 20221006
  2. CISPLATIN [Interacting]
     Active Substance: CISPLATIN
     Indication: Testicular neoplasm
     Dosage: CISPLATINO (644A), DURATION : 67 DAYS
     Dates: start: 20220801, end: 20221006
  3. BLEOMYCIN SULFATE [Interacting]
     Active Substance: BLEOMYCIN SULFATE
     Indication: Testicular neoplasm
     Dosage: BLEOMICINA SULFATO (68SU), DURATION : 67 DAYS
     Dates: start: 20220801, end: 20221006

REACTIONS (2)
  - Acute interstitial pneumonitis [Recovering/Resolving]
  - Drug interaction [Unknown]

NARRATIVE: CASE EVENT DATE: 20221001
